FAERS Safety Report 5500704-3 (Version None)
Quarter: 2007Q4

REPORT INFORMATION
  Report Type: 
  Country: None (occurrence: None)
  Receive Date: 20071025
  Receipt Date: 20071001
  Transmission Date: 20080405
  Serious: Yes (Hospitalization)
  Sender: FDA-Public Use
  Company Number: 070904051

PATIENT
  Age: 3 Year
  Sex: Female
  Weight: 15.4223 kg

DRUGS (1)
  1. DELSYM [Suspect]
     Indication: COUGH
     Dosage: 0.5 TSP, Q.D., ORAL
     Route: 048
     Dates: start: 20070826, end: 20070828

REACTIONS (2)
  - FORMICATION [None]
  - HALLUCINATION [None]
